FAERS Safety Report 16956988 (Version 1)
Quarter: 2019Q4

REPORT INFORMATION
  Report Type: Spontaneous
  Country: US (occurrence: US)
  Receive Date: 20191024
  Receipt Date: 20191024
  Transmission Date: 20200122
  Serious: Yes (Other)
  Sender: FDA-Public Use
  Company Number: US-SA-2019SA293357

PATIENT
  Age: 6 Year
  Sex: Female
  Weight: 20.41 kg

DRUGS (11)
  1. DIPHENHYDRAMINE HYDROCHLORIDE. [Concomitant]
     Active Substance: DIPHENHYDRAMINE HYDROCHLORIDE
     Dosage: 9 MG IV NEEDED FOR ANAPHYLAXIS
     Route: 042
     Dates: start: 20190613
  2. STERILE WATER [Concomitant]
     Active Substance: WATER
     Dosage: 1 EA AS DIRECTED
     Route: 042
     Dates: start: 20190613
  3. SODIUM CHLORIDE 0.9% [Concomitant]
     Active Substance: SODIUM CHLORIDE
     Indication: ANAPHYLACTIC REACTION
     Dosage: AS DIRECTED
     Route: 042
     Dates: start: 20190613
  4. PROVENTIL HFA [SALBUTAMOL] [Concomitant]
     Dosage: 3 ML,NEB EVERY 4 HOURS AS NEEDED
     Route: 065
     Dates: start: 20190822
  5. DIPHENHYDRAMINE. [Concomitant]
     Active Substance: DIPHENHYDRAMINE
     Dosage: 9 MG AS DIRECTED
     Route: 048
     Dates: start: 20190613
  6. LMX [LIDOCAINE] [Concomitant]
     Dosage: 4%, PRN
     Route: 065
     Dates: start: 20190613
  7. SOLU-CORTEF [Concomitant]
     Active Substance: HYDROCORTISONE SODIUM SUCCINATE
     Indication: ANAPHYLACTIC REACTION
     Dosage: 18 MG, PRN
     Route: 065
     Dates: start: 20190613
  8. NORMAL SALINE [Concomitant]
     Active Substance: SODIUM CHLORIDE
     Dosage: 0.9%
     Route: 042
     Dates: start: 20190613
  9. EPINEPHRINE MINIJET [Concomitant]
     Indication: ANAPHYLACTIC REACTION
     Dosage: 0.15 MG, PRN
     Route: 030
     Dates: start: 20190613
  10. CEREZYME [Suspect]
     Active Substance: IMIGLUCERASE
     Indication: GAUCHER^S DISEASE
     Dosage: 1200 UNKNOWN UNITS, QOW
     Route: 041
     Dates: start: 20190612
  11. ACETAMINOPHEN. [Concomitant]
     Active Substance: ACETAMINOPHEN
     Dosage: 270 MG, PRN
     Route: 048
     Dates: start: 20190613

REACTIONS (1)
  - Bronchitis [Unknown]
